FAERS Safety Report 13006782 (Version 1)
Quarter: 2016Q4

REPORT INFORMATION
  Report Type: Report from Study
  Country: US (occurrence: US)
  Receive Date: 20161207
  Receipt Date: 20161207
  Transmission Date: 20170207
  Serious: Yes (Death)
  Sender: FDA-Public Use
  Company Number: US-PFIZER INC-2016563527

PATIENT
  Age: 47 Year
  Sex: Female

DRUGS (1)
  1. IBRANCE [Suspect]
     Active Substance: PALBOCICLIB
     Indication: BREAST CANCER FEMALE
     Dosage: 125 MG, CYCLIC  [1 CAPSULE DAILY FOR 21 DAYS ON]
     Route: 048
     Dates: start: 20160910, end: 20161124

REACTIONS (1)
  - Death [Fatal]

NARRATIVE: CASE EVENT DATE: 20161124
